FAERS Safety Report 14701969 (Version 1)
Quarter: 2018Q1

REPORT INFORMATION
  Report Type: Report from Study
  Country: None (occurrence: BR)
  Receive Date: 20180331
  Receipt Date: 20180331
  Transmission Date: 20180509
  Serious: Yes (Disabling)
  Sender: FDA-Public Use
  Company Number: BR-ABBVIE-18K-020-2304355-00

PATIENT
  Age: 63 Year
  Sex: Female
  Weight: 65 kg

DRUGS (1)
  1. HUMIRA [Suspect]
     Active Substance: ADALIMUMAB
     Indication: RHEUMATOID ARTHRITIS
     Route: 058
     Dates: start: 20171109, end: 201801

REACTIONS (6)
  - Mobility decreased [Unknown]
  - Depression [Not Recovered/Not Resolved]
  - Gait inability [Unknown]
  - Musculoskeletal stiffness [Recovering/Resolving]
  - Daydreaming [Recovered/Resolved]
  - Sciatic nerve neuropathy [Recovering/Resolving]

NARRATIVE: CASE EVENT DATE: 2018
